FAERS Safety Report 12399069 (Version 1)
Quarter: 2016Q2

REPORT INFORMATION
  Report Type: Spontaneous
  Country: US (occurrence: US)
  Receive Date: 20160524
  Receipt Date: 20160524
  Transmission Date: 20160815
  Serious: Yes (Other)
  Sender: FDA-Public Use
  Company Number: US-LPDUSPRD-20160433

PATIENT
  Age: 48 Year
  Sex: Female

DRUGS (3)
  1. NOREPINEPHERINE [Suspect]
     Active Substance: NOREPINEPHRINE\NOREPINEPHRINE BITARTRATE
     Dosage: DOSE UNKNOWN
     Route: 065
  2. EPINEPHRINE INJECTION, USP (1071-25) [Suspect]
     Active Substance: EPINEPHRINE
     Dosage: DOSE UNKNOWN
     Route: 065
  3. DOBUTAMINE [Suspect]
     Active Substance: DOBUTAMINE\DOBUTAMINE HYDROCHLORIDE
     Dosage: DOSE UNKNOWN
     Route: 041

REACTIONS (2)
  - Dry gangrene [Unknown]
  - Ischaemia [Unknown]
